FAERS Safety Report 4326286-X (Version None)
Quarter: 2004Q1

REPORT INFORMATION
  Report Type: 
  Country: None (occurrence: None)
  Receive Date: 20040325
  Receipt Date: 20040113
  Transmission Date: 20041129
  Serious: No
  Sender: FDA-Public Use
  Company Number: US063641

PATIENT

DRUGS (1)
  1. NEULASTA [Suspect]

REACTIONS (2)
  - BONE PAIN [None]
  - WHITE BLOOD CELL COUNT INCREASED [None]
